FAERS Safety Report 18319477 (Version 1)
Quarter: 2020Q3

REPORT INFORMATION
  Report Type: Other
  Country: AT (occurrence: AT)
  Receive Date: 20200928
  Receipt Date: 20200928
  Transmission Date: 20201103
  Serious: Yes (Other)
  Sender: FDA-Public Use
  Company Number: AT-ROCHE-2685942

PATIENT

DRUGS (2)
  1. ALTEPLASE. [Suspect]
     Active Substance: ALTEPLASE
     Dosage: AND ANOTHER 10MG OVER THE COURSE OF 1 H. FREQUENCY: 1, FREQUENCY UNIT: 809
     Route: 042
  2. ALTEPLASE. [Suspect]
     Active Substance: ALTEPLASE
     Indication: THROMBOSIS
     Dosage: LOADING DOSE OF 10MG OVER 10 MIN  FREQUENCY: 1, FREQUENCY UNIT: 809
     Route: 042

REACTIONS (1)
  - Drug ineffective [Unknown]
